FAERS Safety Report 20070486 (Version 3)
Quarter: 2025Q1

REPORT INFORMATION
  Report Type: Spontaneous
  Country: ES (occurrence: ES)
  Receive Date: 20211115
  Receipt Date: 20250121
  Transmission Date: 20250408
  Serious: No
  Sender: MYLAN
  Company Number: ES-EMA-DD-20191031-b8q5m4-173354

PATIENT
  Age: 75 Year
  Sex: Male

DRUGS (4)
  1. ATORVASTATIN [Interacting]
     Active Substance: ATORVASTATIN
     Indication: Product used for unknown indication
     Dosage: 40 MILLIGRAM, QD
     Route: 065
  2. SIMVASTATIN [Suspect]
     Active Substance: SIMVASTATIN
     Indication: Product used for unknown indication
     Route: 065
  3. DAPTOMYCIN [Interacting]
     Active Substance: DAPTOMYCIN
     Indication: Bacteraemia
     Dosage: 7.8 MILLIGRAM/KILOGRAM, QD
     Route: 065
  4. DAPTOMYCIN [Interacting]
     Active Substance: DAPTOMYCIN
     Indication: Sepsis
     Route: 065

REACTIONS (2)
  - Blood creatine phosphokinase increased [Unknown]
  - Drug interaction [Unknown]
